FAERS Safety Report 18790304 (Version 1)
Quarter: 2021Q1

REPORT INFORMATION
  Report Type: Spontaneous
  Country: US (occurrence: US)
  Receive Date: 20210125
  Receipt Date: 20210125
  Transmission Date: 20210419
  Serious: No
  Sender: FDA-Public Use
  Company Number: US-BIOMARINAP-US-2020-133965

PATIENT
  Age: 32 Year
  Sex: Female

DRUGS (1)
  1. ALDURAZYME [Suspect]
     Active Substance: LARONIDASE
     Indication: MUCOPOLYSACCHARIDOSIS I
     Dosage: 37.7 MILLIGRAM, QW
     Route: 042
     Dates: start: 20160915

REACTIONS (1)
  - Hysterectomy [Recovering/Resolving]

NARRATIVE: CASE EVENT DATE: 202012
